FAERS Safety Report 8247062-1 (Version None)
Quarter: 2012Q1

REPORT INFORMATION
  Report Type: 
  Country: None (occurrence: None)
  Receive Date: 20120330
  Receipt Date: 20120321
  Transmission Date: 20120608
  Serious: Yes (Hospitalization)
  Sender: FDA-Public Use
  Company Number: FR-JNJFOC-20120213599

PATIENT
  Age: 52 Year
  Sex: Male

DRUGS (8)
  1. RISPERDAL [Suspect]
     Indication: PRODUCT USED FOR UNKNOWN INDICATION
     Route: 048
     Dates: start: 20120101
  2. TEGRETOL [Concomitant]
     Route: 065
     Dates: start: 20120101
  3. RISPERDAL [Suspect]
     Dosage: 8MG IN 4 INTAKES
     Route: 048
     Dates: start: 20110701, end: 20111101
  4. OXAZEPAM [Concomitant]
     Route: 065
     Dates: start: 20120101
  5. SLEEPING DRUG [Concomitant]
     Route: 065
     Dates: end: 20111101
  6. OXAZEPAM [Concomitant]
     Route: 065
     Dates: end: 20111101
  7. LEPTICUR [Concomitant]
     Route: 065
     Dates: end: 20111101
  8. SOLIAN [Concomitant]
     Route: 065
     Dates: end: 20111101

REACTIONS (12)
  - DEPRESSION [None]
  - AMNESIA [None]
  - DELIRIUM [None]
  - ERECTILE DYSFUNCTION [None]
  - OEDEMA [None]
  - OEDEMA PERIPHERAL [None]
  - HALLUCINATION [None]
  - DISORIENTATION [None]
  - FEELING ABNORMAL [None]
  - MUSCULAR WEAKNESS [None]
  - FATIGUE [None]
  - ABNORMAL BEHAVIOUR [None]
